FAERS Safety Report 9582067 (Version 1)
Quarter: 2013Q4

REPORT INFORMATION
  Report Type: Spontaneous
  Country: CN (occurrence: CN)
  Receive Date: 20131002
  Receipt Date: 20131002
  Transmission Date: 20140711
  Serious: Yes (Hospitalization)
  Sender: FDA-Public Use
  Company Number: CN-BAXTER-2013BAX037325

PATIENT
  Sex: Female

DRUGS (1)
  1. PERITONEAL DIALYSIS SOLUTION (LACTATE- G 1.5%) [Suspect]
     Indication: PERITONEAL DIALYSIS
     Route: 033

REACTIONS (1)
  - Gastroenteritis [Recovered/Resolved]
